FAERS Safety Report 4682076-X (Version None)
Quarter: 2005Q2

REPORT INFORMATION
  Report Type: 
  Country: None (occurrence: None)
  Receive Date: 20050602
  Receipt Date: 20050117
  Transmission Date: 20051028
  Serious: Yes (Other)
  Sender: FDA-Public Use
  Company Number: 2004US001522

PATIENT
  Age: 8 Year
  Sex: Male
  Weight: 30 kg

DRUGS (4)
  1. PROGRAF [Suspect]
     Indication: PROPHYLAXIS AGAINST TRANSPLANT REJECTION
     Dosage: 2.00 MG, UID/QD
     Dates: start: 20040910
  2. CELLCEPT [Concomitant]
  3. STEROIDS [Concomitant]
  4. GANCICLOVIR [Concomitant]

REACTIONS (1)
  - CONVULSION [None]
